FAERS Safety Report 7769880 (Version 4)
Quarter: 2013Q2

REPORT INFORMATION
  Report Type: Report from Study
  Country: US (occurrence: US)
  Receive Date: 20110121
  Receipt Date: 20130524
  Transmission Date: 20140414
  Serious: Yes (Other)
  Sender: FDA-Public Use
  Company Number: US-RB-000141-10

PATIENT
  Age: 48 Year
  Sex: Female

DRUGS (5)
  1. SUBOXONE TABLET [Suspect]
     Indication: DRUG DEPENDENCE
     Route: 060
     Dates: start: 200912, end: 2012
  2. SUBUTEX [Suspect]
     Indication: DRUG DEPENDENCE
     Route: 060
     Dates: start: 2012
  3. LEXAPRO [Concomitant]
     Indication: DEPRESSION
     Route: 065
     Dates: start: 2003
  4. ABILIFY [Concomitant]
     Indication: ANXIETY
     Dosage: DOSING DETAILS UNKNOWN
     Route: 065
     Dates: start: 2003
  5. LEVOTHYROXINE [Concomitant]
     Indication: AUTOIMMUNE THYROIDITIS
     Route: 065
     Dates: start: 1995

REACTIONS (8)
  - Lymphadenopathy [Not Recovered/Not Resolved]
  - Decreased appetite [Recovered/Resolved]
  - Sjogren^s syndrome [Not Recovered/Not Resolved]
  - Bulimia nervosa [Recovered/Resolved]
  - Condition aggravated [Recovered/Resolved]
  - Constipation [Recovered/Resolved]
  - Condition aggravated [Recovered/Resolved]
  - Substance abuse [Unknown]
